FAERS Safety Report 4595014-5 (Version None)
Quarter: 2005Q1

REPORT INFORMATION
  Report Type: 
  Country: None (occurrence: None)
  Receive Date: 20050225
  Receipt Date: 20050210
  Transmission Date: 20050727
  Serious: Yes (Hospitalization)
  Sender: FDA-Public Use
  Company Number: CERZ-10785

PATIENT
  Age: 11 Year
  Sex: Male
  Weight: 27 kg

DRUGS (6)
  1. CEREZYME [Suspect]
     Indication: GAUCHER'S DISEASE
     Dosage: 60 U/KG  Q2WKS IV
     Route: 042
     Dates: start: 20050115
  2. PEPCID [Concomitant]
  3. REGLAN [Concomitant]
  4. MYLICON [Concomitant]
  5. KLONOPIN [Concomitant]
  6. CALCIUM GLUCONATE [Concomitant]

REACTIONS (2)
  - FEMUR FRACTURE [None]
  - OEDEMA PERIPHERAL [None]
